FAERS Safety Report 9393383 (Version 1)
Quarter: 2013Q3

REPORT INFORMATION
  Report Type: Report from Study
  Country: TW (occurrence: TW)
  Receive Date: 20130710
  Receipt Date: 20130710
  Transmission Date: 20140515
  Serious: Yes (Other)
  Sender: FDA-Public Use
  Company Number: PHHO2013TW008867

PATIENT
  Age: 42 Year
  Sex: Female
  Weight: 70 kg

DRUGS (8)
  1. ZOLEDRONATE [Suspect]
     Indication: BREAST CANCER
  2. UTROGESTAN [Concomitant]
     Indication: VAGINAL HAEMORRHAGE
     Dosage: 100 MG, TID
     Route: 048
     Dates: start: 20120207, end: 20120214
  3. UTROGESTAN [Concomitant]
     Dosage: 100 MG, TID
     Route: 048
     Dates: start: 20120218, end: 20120225
  4. TRANSAMIN [Concomitant]
     Dosage: 250 MG, TID
     Route: 048
     Dates: start: 20120218, end: 20130225
  5. TINTEN [Concomitant]
     Indication: OROPHARYNGEAL PAIN
     Dosage: UNK
     Route: 048
  6. COUGH MIXTURE A [Concomitant]
     Indication: PRODUCTIVE COUGH
     Dosage: 10 ML, TID
     Route: 048
     Dates: start: 20120827, end: 20120903
  7. COUGH MIXTURE A [Concomitant]
     Indication: RHINORRHOEA
  8. FINSKA [Concomitant]
     Dosage: 125 MG, TID
     Route: 048

REACTIONS (2)
  - Prolonged labour [Unknown]
  - Maternal exposure during pregnancy [Unknown]
